FAERS Safety Report 12683395 (Version 4)
Quarter: 2018Q1

REPORT INFORMATION
  Report Type: Spontaneous
  Country: US (occurrence: US)
  Receive Date: 20160825
  Receipt Date: 20180131
  Transmission Date: 20180508
  Serious: Yes (Hospitalization)
  Sender: FDA-Public Use
  Company Number: US-PFIZER INC-2016008296

PATIENT
  Age: 40 Year
  Sex: Female
  Weight: 123.3 kg

DRUGS (35)
  1. SYNTHROID [Concomitant]
     Active Substance: LEVOTHYROXINE SODIUM
     Dosage: DOSE INCREASED
     Dates: start: 201602
  2. LISINOPRIL. [Concomitant]
     Active Substance: LISINOPRIL
     Dosage: 5 MG, ONCE A DAY
     Route: 048
  3. SYNTHROID [Concomitant]
     Active Substance: LEVOTHYROXINE SODIUM
     Indication: HYPOTHYROIDISM
     Dosage: 88 UG, ONCE A DAY
     Route: 048
     Dates: start: 2002
  4. HYDROCHLOROTHIAZIDE. [Concomitant]
     Active Substance: HYDROCHLOROTHIAZIDE
     Indication: BLOOD PRESSURE INCREASED
     Dosage: 25 MG, ONCE A DAY
     Route: 048
     Dates: start: 2005
  5. B1 [Concomitant]
     Indication: VITAMIN B1 DEFICIENCY
     Dosage: 250 MG, ONCE A DAY
     Route: 048
     Dates: start: 20160729
  6. LYRICA [Suspect]
     Active Substance: PREGABALIN
     Dosage: 150 MG, TWICE PER DAY
     Dates: start: 2005
  7. COZAAR [Concomitant]
     Active Substance: LOSARTAN POTASSIUM
     Indication: BLOOD PRESSURE ABNORMAL
     Dosage: 25 MG, ONCE A DAY (PILL)
     Route: 048
     Dates: start: 20160729
  8. FOLIC ACID. [Concomitant]
     Active Substance: FOLIC ACID
     Indication: FOLATE DEFICIENCY
     Dosage: 400 UG, ONCE A DAY
     Route: 048
     Dates: start: 20160729
  9. LYRICA [Suspect]
     Active Substance: PREGABALIN
     Dosage: 150 MG, THRICE PER DAY
     Route: 048
     Dates: start: 2006
  10. LYRICA [Suspect]
     Active Substance: PREGABALIN
     Dosage: 300MG, TAKING 2 CAPSULES (DF) TWICE PER DAY FOR THE FIRST TWO DAYS
     Route: 048
     Dates: start: 20160818, end: 20160819
  11. LYRICA [Suspect]
     Active Substance: PREGABALIN
     Dosage: 150 MG, ONE IN THE MORNING (SATURDAY)
     Route: 048
     Dates: start: 20160820, end: 20160820
  12. LYRICA [Suspect]
     Active Substance: PREGABALIN
     Dosage: 150MG, ONE IN THE AFTERNOON (SUNDAY)
     Route: 048
     Dates: start: 20160821, end: 20160821
  13. NEXIUM 24HR [Concomitant]
     Active Substance: ESOMEPRAZOLE MAGNESIUM
     Indication: GASTROOESOPHAGEAL REFLUX DISEASE
     Dosage: 22.5 MG, ONCE A DAY
     Route: 048
     Dates: start: 20160730
  14. BUSPAR [Concomitant]
     Active Substance: BUSPIRONE HYDROCHLORIDE
     Indication: ANXIETY
     Dosage: 15 MG, TWICE PER DAY
     Route: 048
     Dates: start: 2010
  15. ASPIRIN. [Concomitant]
     Active Substance: ASPIRIN
     Indication: MYOCARDIAL INFARCTION
  16. VITAMIN C [Concomitant]
     Active Substance: ASCORBIC ACID
     Indication: VITAMIN C DEFICIENCY
     Dosage: 1000 MG, ONCE A DAY
     Route: 048
     Dates: start: 20160729
  17. LOSARTAN. [Concomitant]
     Active Substance: LOSARTAN
     Indication: BLOOD PRESSURE MEASUREMENT
     Dosage: 25 MG, ONCE A DAY
     Route: 048
  18. LYRICA [Suspect]
     Active Substance: PREGABALIN
     Indication: FIBROMYALGIA
     Dosage: 150 MG, THRICE PER DAY
     Route: 048
     Dates: start: 2005
  19. CELEXA [Concomitant]
     Active Substance: CITALOPRAM HYDROBROMIDE
     Indication: DEPRESSION
     Dosage: 40 MG, ONCE A DAY
     Route: 048
     Dates: start: 2006
  20. VITAMIN B12 [Concomitant]
     Active Substance: CYANOCOBALAMIN
     Indication: VITAMIN B12 DEFICIENCY
     Dosage: 1000 UG, ONCE A DAY
     Route: 048
     Dates: start: 20160729
  21. LEVOTHYROXINE. [Concomitant]
     Active Substance: LEVOTHYROXINE
     Indication: HYPOTHYROIDISM
     Dosage: 100 UG, ONCE A DAY
     Route: 048
     Dates: start: 2001
  22. HYDROCHLOROTHIAZIDE. [Concomitant]
     Active Substance: HYDROCHLOROTHIAZIDE
     Dosage: 12.5 MG, ONCE A DAY
     Route: 048
     Dates: start: 20160729
  23. HYDROCHLOROTHIAZIDE. [Concomitant]
     Active Substance: HYDROCHLOROTHIAZIDE
     Dosage: 10 MG, ONCE A DAY
     Route: 048
  24. ASPIRIN. [Concomitant]
     Active Substance: ASPIRIN
     Indication: CEREBROVASCULAR ACCIDENT
     Dosage: 81 MG, ONCE A DAY
     Route: 048
     Dates: start: 20160729
  25. IRON [Concomitant]
     Active Substance: IRON
     Indication: IRON DEFICIENCY
     Dosage: 325 MG, ONCE A DAY
     Route: 048
     Dates: start: 20160729
  26. SYNTHROID [Concomitant]
     Active Substance: LEVOTHYROXINE SODIUM
     Dosage: 100 UG, ONCE A DAY
     Route: 048
  27. STOOL SOFTENER (DOCUSATE) [Concomitant]
     Active Substance: DOCUSATE
     Indication: IRON DEFICIENCY
     Dosage: 100 MG, ONCE A DAY
     Route: 048
     Dates: start: 20160729
  28. VITAMIN D3 [Concomitant]
     Active Substance: CHOLECALCIFEROL
     Indication: VITAMIN D DEFICIENCY
     Dosage: 5000 IU, ONCE A DAY (GEL TABLET)
     Route: 048
     Dates: start: 20160729
  29. LOSARTAN. [Concomitant]
     Active Substance: LOSARTAN
     Dosage: 10 MG, ONCE A DAY
     Route: 048
  30. CITALOPRAM [Concomitant]
     Active Substance: CITALOPRAM HYDROBROMIDE
     Indication: DEPRESSION
     Dosage: 40 MG, ONCE A DAY
     Route: 048
     Dates: start: 2001
  31. ATORVASTATIN [Concomitant]
     Active Substance: ATORVASTATIN
     Dosage: 25 MG, ONCE PER DAY
     Route: 048
  32. LIPITOR [Concomitant]
     Active Substance: ATORVASTATIN CALCIUM
     Indication: BLOOD CHOLESTEROL INCREASED
     Dosage: 10 MG, ONCE A DAY
     Route: 048
     Dates: start: 20160729
  33. REQUIP [Concomitant]
     Active Substance: ROPINIROLE HYDROCHLORIDE
     Indication: RESTLESS LEGS SYNDROME
     Dosage: 1 MG, ONCE A DAY
     Route: 048
     Dates: start: 201602
  34. TRAZODONE [Concomitant]
     Active Substance: TRAZODONE HYDROCHLORIDE
     Indication: SLEEP DISORDER
     Dosage: 50 MG, ONCE A DAY
     Route: 048
     Dates: start: 20160729
  35. VITAMINS [Concomitant]
     Active Substance: VITAMINS
     Dosage: UNK

REACTIONS (14)
  - Drug dose omission [Unknown]
  - Myalgia [Not Recovered/Not Resolved]
  - Bone pain [Not Recovered/Not Resolved]
  - Pain [Not Recovered/Not Resolved]
  - Night sweats [Not Recovered/Not Resolved]
  - Feeling of body temperature change [Not Recovered/Not Resolved]
  - Intentional product use issue [Unknown]
  - Insomnia [Unknown]
  - Nightmare [Not Recovered/Not Resolved]
  - Anxiety [Recovering/Resolving]
  - Withdrawal syndrome [Not Recovered/Not Resolved]
  - Condition aggravated [Not Recovered/Not Resolved]
  - Depression [Recovering/Resolving]
  - Neuralgia [Not Recovered/Not Resolved]

NARRATIVE: CASE EVENT DATE: 2009
